FAERS Safety Report 23972729 (Version 1)
Quarter: 2024Q2

REPORT INFORMATION
  Report Type: Spontaneous
  Country: US (occurrence: None)
  Receive Date: 20240613
  Receipt Date: 20240613
  Transmission Date: 20240717
  Serious: Yes (Hospitalization)
  Sender: FDA-Public Use
  Company Number: None

PATIENT
  Age: 89 Year
  Sex: Female
  Weight: 73.8 kg

DRUGS (2)
  1. FEMARA [Suspect]
     Active Substance: LETROZOLE
  2. PALBOCICLIB [Suspect]
     Active Substance: PALBOCICLIB
     Dates: end: 20240609

REACTIONS (2)
  - COVID-19 [None]
  - Rotavirus infection [None]

NARRATIVE: CASE EVENT DATE: 20240610
